FAERS Safety Report 21797697 (Version 1)
Quarter: 2022Q4

REPORT INFORMATION
  Report Type: Spontaneous
  Country: ES (occurrence: ES)
  Receive Date: 20221230
  Receipt Date: 20221230
  Transmission Date: 20230113
  Serious: Yes (Other)
  Sender: FDA-Public Use
  Company Number: ES-AMAROX PHARMA GMBH-AMR2022ES03086

PATIENT
  Age: 67 Year
  Sex: Female

DRUGS (6)
  1. QUETIAPINE [Suspect]
     Active Substance: QUETIAPINE
     Indication: Major depression
     Dosage: UNK,REDUCE THE NEUROLEPTIC DOSE BY HALF
     Route: 065
  2. QUETIAPINE [Suspect]
     Active Substance: QUETIAPINE
     Dosage: 50 MILLIGRAM, ONCE A DAY
     Route: 065
  3. QUETIAPINE [Suspect]
     Active Substance: QUETIAPINE
     Dosage: 75 MILLIGRAM, ONCE A DAY
     Route: 065
  4. QUETIAPINE [Suspect]
     Active Substance: QUETIAPINE
     Dosage: 100 MILLIGRAM, ONCE A DAY
     Route: 065
  5. DULOXETINE [Concomitant]
     Active Substance: DULOXETINE
     Indication: Major depression
     Dosage: 60 MILLIGRAM, ONCE A DAY
     Route: 065
  6. ALPRAZOLAM [Concomitant]
     Active Substance: ALPRAZOLAM
     Indication: Major depression
     Dosage: 0.5 MILLIGRAM, (1 / 2-1 / 2.0)
     Route: 065

REACTIONS (1)
  - Burning mouth syndrome [Recovered/Resolved]
